FAERS Safety Report 10886061 (Version 1)
Quarter: 2015Q1

REPORT INFORMATION
  Report Type: Spontaneous
  Country: US (occurrence: None)
  Receive Date: 20150302
  Receipt Date: 20150302
  Transmission Date: 20150721
  Serious: Yes (Hospitalization)
  Sender: FDA-Public Use
  Company Number: FK201500942

PATIENT
  Age: 10 Year
  Sex: Male

DRUGS (2)
  1. VANCOMYCIN [Concomitant]
     Active Substance: VANCOMYCIN
  2. CEFTRIAXON [Suspect]
     Active Substance: CEFTRIAXONE
     Indication: ARTHRITIS BACTERIAL

REACTIONS (6)
  - Platelet count decreased [None]
  - Cholecystitis acute [None]
  - White blood cell count decreased [None]
  - Disease progression [None]
  - Cholelithiasis [None]
  - Osteomyelitis [None]
